FAERS Safety Report 25733309 (Version 1)
Quarter: 2025Q3

REPORT INFORMATION
  Report Type: Spontaneous
  Country: EU (occurrence: EU)
  Receive Date: 20250828
  Receipt Date: 20250828
  Transmission Date: 20251021
  Serious: Yes (Life-Threatening, Hospitalization, Other)
  Sender: TEVA
  Company Number: None

PATIENT
  Age: 36 Year
  Sex: Female
  Weight: 65 kg

DRUGS (1)
  1. DULOXETINE [Suspect]
     Active Substance: DULOXETINE
     Indication: Depression
     Route: 048
     Dates: start: 2024, end: 20250531

REACTIONS (5)
  - Thrombocytopenia [Recovered/Resolved with Sequelae]
  - Platelet dysfunction [Unknown]
  - Uterine haemorrhage [Recovered/Resolved with Sequelae]
  - Exposure during pregnancy [Unknown]
  - Hysterectomy [Unknown]

NARRATIVE: CASE EVENT DATE: 20250101
